FAERS Safety Report 4470643-8 (Version None)
Quarter: 2004Q4

REPORT INFORMATION
  Report Type: 
  Country: None (occurrence: None)
  Receive Date: 20041005
  Receipt Date: 20040923
  Transmission Date: 20050328
  Serious: Yes (Life-Threatening)
  Sender: FDA-Public Use
  Company Number: S04-FRA-04274-01

PATIENT
  Age: 78 Year
  Sex: Male

DRUGS (5)
  1. EBIXA (MEMANTINE) [Suspect]
     Indication: SENILE DEMENTIA
     Dosage: 10 MG QD; PO
     Route: 048
     Dates: start: 20040706, end: 20040709
  2. CLONAZEPAM [Concomitant]
  3. FORLAX (MACROGOL) [Concomitant]
  4. NOCTAMID (LORMETAZEPAM) [Concomitant]
  5. TRANXENE (CLORAZEPATH DIPOTASSIUM) [Concomitant]

REACTIONS (12)
  - AKATHISIA [None]
  - AKINESIA [None]
  - ANXIETY [None]
  - BLOOD CREATINE PHOSPHOKINASE INCREASED [None]
  - COGNITIVE DISORDER [None]
  - CONFUSIONAL STATE [None]
  - DEHYDRATION [None]
  - DIET REFUSAL [None]
  - HYPERTONIA [None]
  - INSOMNIA [None]
  - PYREXIA [None]
  - RENAL FAILURE [None]
